FAERS Safety Report 24877134 (Version 1)
Quarter: 2025Q1

REPORT INFORMATION
  Report Type: Spontaneous
  Country: CH (occurrence: CH)
  Receive Date: 20250123
  Receipt Date: 20250123
  Transmission Date: 20250408
  Serious: Yes (Other)
  Sender: ROCHE
  Company Number: CH-ROCHE-10000182369

PATIENT

DRUGS (7)
  1. AVASTIN [Suspect]
     Active Substance: BEVACIZUMAB
     Indication: Product used for unknown indication
     Route: 065
     Dates: start: 20190319, end: 20190601
  2. AVASTIN [Suspect]
     Active Substance: BEVACIZUMAB
     Route: 065
     Dates: start: 20200717, end: 20201106
  3. AVASTIN [Suspect]
     Active Substance: BEVACIZUMAB
     Route: 065
     Dates: start: 20190601, end: 20200624
  4. AVASTIN [Suspect]
     Active Substance: BEVACIZUMAB
     Route: 065
     Dates: start: 20210112, end: 20210202
  5. CARBOPLATIN [Concomitant]
     Active Substance: CARBOPLATIN
     Dates: start: 20190319, end: 20190601
  6. CARBOPLATIN [Concomitant]
     Active Substance: CARBOPLATIN
     Dates: start: 20200717, end: 20201106
  7. PEMETREXED [Concomitant]
     Active Substance: PEMETREXED
     Dates: start: 20190319, end: 20190601

REACTIONS (5)
  - Ascites [Unknown]
  - Metastases to pleura [Unknown]
  - Pleural neoplasm [Unknown]
  - Proteinuria [Unknown]
  - Metastases to peritoneum [Unknown]

NARRATIVE: CASE EVENT DATE: 20200707
